FAERS Safety Report 23098216 (Version 1)
Quarter: 2023Q4

REPORT INFORMATION
  Report Type: Spontaneous
  Country: US (occurrence: None)
  Receive Date: 20231020
  Receipt Date: 20231020
  Transmission Date: 20240110
  Serious: Yes (Other)
  Sender: FDA-Public Use
  Company Number: None

PATIENT
  Age: 55 Year
  Sex: Female
  Weight: 80.29 kg

DRUGS (6)
  1. AFRIN [Suspect]
     Active Substance: OXYMETAZOLINE
  2. ATROVENT [Suspect]
     Active Substance: IPRATROPIUM BROMIDE
  3. FLUNISOLIDE [Suspect]
     Active Substance: FLUNISOLIDE
  4. NASAREL [Suspect]
     Active Substance: FLUNISOLIDE
  5. NASONEX [Suspect]
     Active Substance: MOMETASONE FUROATE
  6. RHINOCORT ALLERGY [Suspect]
     Active Substance: BUDESONIDE

REACTIONS (5)
  - Drug ineffective [None]
  - Nausea [None]
  - Nasal discomfort [None]
  - Cough [None]
  - Condition aggravated [None]

NARRATIVE: CASE EVENT DATE: 20230915
